FAERS Safety Report 11716159 (Version 1)
Quarter: 2015Q4

REPORT INFORMATION
  Report Type: Report from Study
  Country: US (occurrence: US)
  Receive Date: 20151109
  Receipt Date: 20151109
  Transmission Date: 20160304
  Serious: No
  Sender: FDA-Public Use
  Company Number: US-ABBVIE-15P-163-1332130-00

PATIENT
  Sex: Male

DRUGS (2)
  1. TRICOR [Suspect]
     Active Substance: FENOFIBRATE
     Route: 048
     Dates: start: 2014
  2. TRICOR [Suspect]
     Active Substance: FENOFIBRATE
     Indication: BLOOD TRIGLYCERIDES INCREASED
     Route: 048
     Dates: start: 200806, end: 2014

REACTIONS (1)
  - Blood triglycerides increased [Recovered/Resolved]

NARRATIVE: CASE EVENT DATE: 2014
